FAERS Safety Report 13040655 (Version 1)
Quarter: 2016Q4

REPORT INFORMATION
  Report Type: Spontaneous
  Country: GB (occurrence: GB)
  Receive Date: 20161219
  Receipt Date: 20161219
  Transmission Date: 20170207
  Serious: Yes (Other)
  Sender: FDA-Public Use
  Company Number: GB-GLAXOSMITHKLINE-GB2016183920

PATIENT
  Age: 34 Year
  Sex: Male
  Weight: 80 kg

DRUGS (1)
  1. DUTASTERIDE. [Suspect]
     Active Substance: DUTASTERIDE
     Indication: ANDROGENETIC ALOPECIA
     Dosage: 0.5 MG, UNK
     Route: 048
     Dates: start: 20050610, end: 20161021

REACTIONS (1)
  - Hypoglycaemia [Recovered/Resolved]

NARRATIVE: CASE EVENT DATE: 20150504
